FAERS Safety Report 19397677 (Version 1)
Quarter: 2021Q2

REPORT INFORMATION
  Report Type: Other
  Country: US (occurrence: US)
  Receive Date: 20210609
  Receipt Date: 20210609
  Transmission Date: 20210717
  Serious: Yes (Hospitalization)
  Sender: FDA-Public Use
  Company Number: US-ROCHE-2843453

PATIENT
  Sex: Female

DRUGS (1)
  1. KADCYLA [Suspect]
     Active Substance: ADO-TRASTUZUMAB EMTANSINE
     Indication: NEOPLASM MALIGNANT
     Dosage: INFUSE 300MG INTRAVENOUSLY AS DIRECTED?DATE OF TREATMENT: 29/DEC/2020, 04/DEC/2020
     Route: 042

REACTIONS (1)
  - Sepsis [Unknown]
